FAERS Safety Report 6382270-6 (Version None)
Quarter: 2009Q3

REPORT INFORMATION
  Report Type: 
  Country: None (occurrence: None)
  Receive Date: 20090928
  Receipt Date: 20090928
  Transmission Date: 20100115
  Serious: Yes (Life-Threatening, Hospitalization)
  Sender: FDA-Public Use
  Company Number: None

PATIENT
  Age: 46 Year
  Sex: Female
  Weight: 50.8029 kg

DRUGS (1)
  1. TRIVORA-28 [Suspect]
     Indication: CONTRACEPTION
     Dosage: 1 X'S DAILY ORAL 5-10 YRS
     Route: 048

REACTIONS (2)
  - CEREBROVASCULAR ACCIDENT [None]
  - LACUNAR INFARCTION [None]
